FAERS Safety Report 9257591 (Version 1)
Quarter: 2013Q1

REPORT INFORMATION
  Report Type: Spontaneous
  Country: US (occurrence: None)
  Receive Date: 20121212
  Receipt Date: 20121212
  Transmission Date: 20140127
  Serious: No
  Sender: FDA-Public Use
  Company Number: 1208USA006566

PATIENT
  Age: 60 Year
  Sex: Male

DRUGS (3)
  1. PEGINTRON [Suspect]
     Indication: HEPATITIS C
     Dosage: 0.4ML (96 MCG), QW, SUBCUTANEOUS
     Route: 058
     Dates: start: 20120315
  2. VICTRELIS [Suspect]
     Indication: HEPATITIS C
     Dosage: 4 DF, TID, ORAL
     Route: 048
     Dates: start: 20120412
  3. RIBASPHERE (RIBAVIRIN) [Concomitant]

REACTIONS (8)
  - Injection site abscess [None]
  - Dyspnoea [None]
  - Pyrexia [None]
  - Fatigue [None]
  - Dry skin [None]
  - Dizziness [None]
  - Chills [None]
  - Rash [None]
